FAERS Safety Report 9403203 (Version 1)
Quarter: 2013Q3

REPORT INFORMATION
  Report Type: Report from Study
  Country: US (occurrence: US)
  Receive Date: 20130716
  Receipt Date: 20130716
  Transmission Date: 20140515
  Serious: Yes (Hospitalization)
  Sender: FDA-Public Use
  Company Number: US-GLAXOSMITHKLINE-A1033596A

PATIENT
  Age: 71 Year
  Sex: Male
  Weight: 81.2 kg

DRUGS (13)
  1. OFATUMUMAB [Suspect]
     Indication: CHRONIC LYMPHOCYTIC LEUKAEMIA
     Dosage: 300MG CYCLIC
     Route: 042
     Dates: start: 20130426
  2. INVESTIGATIONAL DRUG [Concomitant]
     Indication: CHRONIC LYMPHOCYTIC LEUKAEMIA
     Dosage: 150MG PER DAY
     Route: 048
     Dates: start: 20130502
  3. TERAZOSIN [Concomitant]
  4. VITAMIN D3 [Concomitant]
  5. TRIMETHOPRIM [Concomitant]
  6. ACYCLOVIR [Concomitant]
  7. HYDROMORPHONE [Concomitant]
  8. DIPHENHYDRAMINE [Concomitant]
  9. MELATONIN [Concomitant]
  10. PANTOPRAZOLE [Concomitant]
  11. SIMVASTATIN [Concomitant]
  12. ALLOPURINOL [Concomitant]
  13. PRINIVIL [Concomitant]

REACTIONS (1)
  - Febrile neutropenia [Recovered/Resolved]
